FAERS Safety Report 4692315-7 (Version None)
Quarter: 2005Q2

REPORT INFORMATION
  Report Type: 
  Country: None (occurrence: None)
  Receive Date: 20050614
  Receipt Date: 20050601
  Transmission Date: 20051028
  Serious: Yes (Life-Threatening)
  Sender: FDA-Public Use
  Company Number: 214969

PATIENT
  Sex: Male

DRUGS (18)
  1. MABTHERA(RITUXIMAB) CONC FOR SOLUTION FOR INFUSION [Suspect]
     Indication: LYMPHOMA
     Dosage: 625 MG, INTRAVENOUS
     Route: 042
     Dates: start: 20050322, end: 20050414
  2. ALDESLEUKIN (ALDESLEUKIN) [Suspect]
     Indication: LYMPHOMA
     Dosage: SEE IMAGE
     Route: 058
     Dates: start: 20050329, end: 20050414
  3. ALDESLEUKIN (ALDESLEUKIN) [Suspect]
     Indication: LYMPHOMA
     Dosage: SEE IMAGE
     Route: 058
     Dates: start: 20050421
  4. CLARITINE (LORATADINE) [Concomitant]
  5. ACETAMINOPHEN [Concomitant]
  6. VITAMIN B-12 [Concomitant]
  7. ALLOPURINOL [Concomitant]
  8. FOLIC ACID [Concomitant]
  9. ASCORBIC ACID [Concomitant]
  10. DIMEDROL (DIPHENHYDRAMINE) [Concomitant]
  11. SODIUM CHLORIDE 0.9% [Concomitant]
  12. GLUCOSE (GLUCOSE) [Concomitant]
  13. DEXAMETHASONE [Concomitant]
  14. RHEOPOLYGLUCIN (GLUCOSE POLYMERS) [Concomitant]
  15. DIOTER [Concomitant]
  16. ESSENTIALE [Concomitant]
  17. THIATRIAZOLIN [Concomitant]
  18. DIPYRONE INJ [Concomitant]

REACTIONS (2)
  - CEREBROVASCULAR ACCIDENT [None]
  - ENCEPHALOPATHY [None]
